FAERS Safety Report 20659565 (Version 1)
Quarter: 2022Q1

REPORT INFORMATION
  Report Type: Spontaneous
  Country: CN (occurrence: CN)
  Receive Date: 20220331
  Receipt Date: 20220331
  Transmission Date: 20220424
  Serious: Yes (Other)
  Sender: FDA-Public Use
  Company Number: CN-PFIZER INC-202200468909

PATIENT
  Age: 67 Year
  Sex: Male
  Weight: 40 kg

DRUGS (5)
  1. DIFLUCAN [Suspect]
     Active Substance: FLUCONAZOLE
     Indication: Chronic obstructive pulmonary disease
     Dosage: 400 MG, 1X/DAY
     Route: 048
     Dates: start: 20220309, end: 20220315
  2. DIFLUCAN [Suspect]
     Active Substance: FLUCONAZOLE
     Indication: Lower respiratory tract infection
  3. DOXOFYLLINE [Suspect]
     Active Substance: DOXOFYLLINE
     Indication: Chronic obstructive pulmonary disease
     Dosage: 0.200 G, 2X/DAY
     Route: 041
     Dates: start: 20220308, end: 20220315
  4. DOXOFYLLINE [Suspect]
     Active Substance: DOXOFYLLINE
     Indication: Lower respiratory tract infection
  5. SODIUM CHLORIDE [Concomitant]
     Active Substance: SODIUM CHLORIDE
     Indication: Vehicle solution use
     Dosage: 100 ML, 2X/DAY
     Route: 041
     Dates: start: 20220308, end: 20220315

REACTIONS (4)
  - Conversion disorder [Recovered/Resolved]
  - Halo vision [Recovered/Resolved]
  - Mental disorder [Recovered/Resolved]
  - Disorganised speech [Recovered/Resolved]

NARRATIVE: CASE EVENT DATE: 20220313
